FAERS Safety Report 22173290 (Version 1)
Quarter: 2023Q2

REPORT INFORMATION
  Report Type: Spontaneous
  Country: US (occurrence: None)
  Receive Date: 20230404
  Receipt Date: 20230404
  Transmission Date: 20230722
  Serious: No
  Sender: FDA-Public Use
  Company Number: None

PATIENT
  Age: 46 Year
  Sex: Female
  Weight: 127.01 kg

DRUGS (1)
  1. ENBREL [Suspect]
     Active Substance: ETANERCEPT
     Dosage: FREQUENCY : WEEKLY;?
     Route: 058
     Dates: start: 202302

REACTIONS (6)
  - Infection [None]
  - Injection site pain [None]
  - Injection site erythema [None]
  - Injection site swelling [None]
  - Injection site bruising [None]
  - Injection site rash [None]
